FAERS Safety Report 8595382-3 (Version None)
Quarter: 2012Q3

REPORT INFORMATION
  Report Type: 
  Country: None (occurrence: None)
  Receive Date: 20120815
  Receipt Date: 20120514
  Transmission Date: 20120928
  Serious: No
  Sender: FDA-Public Use
  Company Number: US-BRISTOL-MYERS SQUIBB COMPANY-16533986

PATIENT
  Age: 77 Year
  Sex: Female

DRUGS (1)
  1. ONGLYZA [Suspect]
     Indication: DIABETES MELLITUS
     Dosage: FOR ABOUT 3 WEEKS TO A MONTH,SAMPLES
     Route: 048

REACTIONS (1)
  - OEDEMA PERIPHERAL [None]
